FAERS Safety Report 9534857 (Version 2)
Quarter: 2013Q3

REPORT INFORMATION
  Report Type: Spontaneous
  Country: US (occurrence: US)
  Receive Date: 20130918
  Receipt Date: 20130918
  Transmission Date: 20140515
  Serious: No
  Sender: FDA-Public Use
  Company Number: US-PURDUE-USA-2011-0080069

PATIENT
  Age: 23 Year
  Sex: Male
  Weight: 111.11 kg

DRUGS (3)
  1. BUTRANS [Suspect]
     Indication: PAIN
     Dosage: 20 MCG, Q1H
     Route: 062
     Dates: start: 20110919, end: 20111212
  2. MORPHINE SULFATE (SIMILAR TO NDA 19-516) [Concomitant]
     Indication: PAIN IN EXTREMITY
     Dosage: 30 MG, TID
  3. MORPHINE SULFATE EXTENDED-RELEASE TABLETS (RHODES 74-769) [Concomitant]
     Indication: PAIN IN EXTREMITY
     Dosage: 30 MG, DAILY

REACTIONS (6)
  - Application site scab [Recovered/Resolved]
  - Application site discharge [Recovered/Resolved]
  - Application site pain [Recovered/Resolved]
  - Application site pruritus [Recovered/Resolved]
  - Application site erythema [Recovered/Resolved]
  - Application site vesicles [Recovered/Resolved]
